FAERS Safety Report 8610206-3 (Version None)
Quarter: 2012Q3

REPORT INFORMATION
  Report Type: 
  Country: None (occurrence: None)
  Receive Date: 20120822
  Receipt Date: 20120816
  Transmission Date: 20120928
  Serious: No
  Sender: FDA-Public Use
  Company Number: US-BIOGENIDEC-2012BI032232

PATIENT
  Sex: Female

DRUGS (1)
  1. AVONEX [Suspect]
     Indication: MULTIPLE SCLEROSIS
     Route: 030
     Dates: start: 20080816

REACTIONS (4)
  - INJECTION SITE HAEMORRHAGE [None]
  - EAR PRURITUS [None]
  - INJECTION SITE PAIN [None]
  - MEMORY IMPAIRMENT [None]
